FAERS Safety Report 9978419 (Version 1)
Quarter: 2014Q1

REPORT INFORMATION
  Report Type: Report from Study
  Country: US (occurrence: US)
  Receive Date: 20140306
  Receipt Date: 20140306
  Transmission Date: 20141002
  Serious: Yes (Other)
  Sender: FDA-Public Use
  Company Number: US-ABBVIE-13P-163-1172773-00

PATIENT
  Age: 60 Year
  Sex: Male

DRUGS (13)
  1. HUMIRA [Suspect]
     Indication: RHEUMATOID ARTHRITIS
     Dates: start: 200301
  2. HUMIRA [Suspect]
  3. OXYCODONE (OR SOMETHING LIKE IT) [Suspect]
     Indication: PRODUCT USED FOR UNKNOWN INDICATION
  4. UNKNOWN THYROID MED ^THYROX .75 OR SOMETHING^ [Concomitant]
     Indication: HYPOTHYROIDISM
     Dosage: EVERY DAY
  5. UNKNOWN STATIN DRUG [Concomitant]
     Indication: BLOOD CHOLESTEROL INCREASED
     Dosage: EVERY DAY, MAYBE ABOUT 15 YEARS
  6. SENTRUM SILVER [Concomitant]
     Indication: PRODUCT USED FOR UNKNOWN INDICATION
     Dosage: EVERY DAY
  7. FLAX SEED [Concomitant]
     Indication: PRODUCT USED FOR UNKNOWN INDICATION
     Dosage: EVERY DAY
  8. KRILL OIL [Concomitant]
     Indication: PRODUCT USED FOR UNKNOWN INDICATION
     Dosage: EVERY DAY
  9. GLUCOSAMINE CHONDROTIN [Concomitant]
     Indication: PRODUCT USED FOR UNKNOWN INDICATION
     Dosage: EVERY DAY
  10. ALEVE [Concomitant]
     Indication: MIGRAINE
     Dosage: EVERY DAY
  11. ALEVE [Concomitant]
     Indication: MIGRAINE PROPHYLAXIS
  12. EXTRA STRENGTH TYLENOL [Concomitant]
     Indication: MIGRAINE
     Dosage: EVERY DAY
  13. EXTRA STRENGTH TYLENOL [Concomitant]
     Indication: MIGRAINE PROPHYLAXIS

REACTIONS (8)
  - Knee arthroplasty [Recovered/Resolved]
  - Injection site bruising [Recovering/Resolving]
  - Injection site pain [Unknown]
  - Delusion [Unknown]
  - Illusion [Unknown]
  - Hallucination [Unknown]
  - Tooth fracture [Not Recovered/Not Resolved]
  - Arthralgia [Not Recovered/Not Resolved]
